FAERS Safety Report 4373282-2 (Version None)
Quarter: 2004Q2

REPORT INFORMATION
  Report Type: 
  Country: None (occurrence: None)
  Receive Date: 20040608
  Receipt Date: 20040603
  Transmission Date: 20050107
  Serious: Yes (Other)
  Sender: FDA-Public Use
  Company Number: DE-GLAXOSMITHKLINE-D0043928A

PATIENT
  Age: 41 Year
  Sex: Male
  Weight: 62 kg

DRUGS (12)
  1. EPIVIR [Suspect]
     Route: 048
     Dates: start: 20031118, end: 20031203
  2. VIREAD [Suspect]
     Route: 048
     Dates: start: 20031118, end: 20031203
  3. KALETRA [Suspect]
     Route: 048
     Dates: start: 20031118, end: 20031203
  4. RITONAVIR [Suspect]
     Route: 048
     Dates: start: 20031118, end: 20031203
  5. COTRIM DS [Suspect]
     Route: 065
     Dates: start: 20031118, end: 20031203
  6. LOPEDIUM [Concomitant]
     Route: 048
     Dates: start: 20031118, end: 20031203
  7. METOCLOPRAMIDE [Concomitant]
     Route: 065
  8. LORAZEPAM [Concomitant]
     Route: 065
     Dates: start: 20031118, end: 20031203
  9. AMOXICILLIN [Concomitant]
     Route: 065
     Dates: start: 20030405, end: 20030415
  10. GELOMYRTOL [Concomitant]
     Route: 065
     Dates: start: 20010101, end: 20031203
  11. ACETAMINOPHEN [Concomitant]
     Route: 065
     Dates: start: 19980101, end: 20030101
  12. BALDRIAN [Concomitant]
     Route: 065
     Dates: start: 19930101, end: 20030101

REACTIONS (2)
  - HAEMOLYTIC ANAEMIA [None]
  - IDIOPATHIC THROMBOCYTOPENIC PURPURA [None]
